FAERS Safety Report 5795362-7 (Version None)
Quarter: 2008Q2

REPORT INFORMATION
  Report Type: 
  Country: None (occurrence: None)
  Receive Date: 20080601
  Receipt Date: 20080124
  Transmission Date: 20081010
  Serious: No
  Sender: FDA-Public Use
  Company Number: US200801005278

PATIENT
  Age: 43 Year
  Sex: Male

DRUGS (1)
  1. BYETTA [Suspect]
     Indication: TYPE 2 DIABETES MELLITUS
     Dosage: 5 UG, DAILY (1/D), SUBCUTANEOUS
     Route: 058
     Dates: start: 20080101, end: 20080113

REACTIONS (9)
  - BLOOD GLUCOSE INCREASED [None]
  - BURNING SENSATION [None]
  - CHEST PAIN [None]
  - CONFUSIONAL STATE [None]
  - DIARRHOEA [None]
  - FEELING ABNORMAL [None]
  - INCREASED APPETITE [None]
  - INSOMNIA [None]
  - NERVOUSNESS [None]
